FAERS Safety Report 9824238 (Version 4)
Quarter: 2014Q2

REPORT INFORMATION
  Report Type: Spontaneous
  Country: JP (occurrence: JP)
  Receive Date: 20140116
  Receipt Date: 20140514
  Transmission Date: 20141212
  Serious: Yes (Death, Hospitalization, Other)
  Sender: FDA-Public Use
  Company Number: JP-009507513-1401JPN005730

PATIENT
  Age: 91 Year
  Sex: Female

DRUGS (5)
  1. STROMECTOL TABLETS 3 MG [Suspect]
     Indication: ACARODERMATITIS
     Dosage: 6 MG, QD
     Route: 048
     Dates: start: 20131202, end: 20131202
  2. STROMECTOL TABLETS 3 MG [Suspect]
     Dosage: 6 MG, QD
     Route: 048
     Dates: start: 20131212, end: 20131212
  3. NIFEDIPINE CR SAWAI [Concomitant]
     Dosage: 20 MG, QD
     Route: 048
  4. YOULACTONE [Concomitant]
     Dosage: 25 MG, QD
     Route: 048
  5. DONEPEZIL HYDROCHLORIDE [Concomitant]
     Dosage: 5 MG, QD
     Route: 048

REACTIONS (7)
  - Platelet count decreased [Fatal]
  - Sepsis [Fatal]
  - Disseminated intravascular coagulation [Fatal]
  - Generalised oedema [Fatal]
  - Pyelonephritis [Unknown]
  - Cardiac failure [Fatal]
  - Multi-organ failure [Fatal]
